FAERS Safety Report 18718523 (Version 3)
Quarter: 2021Q1

REPORT INFORMATION
  Report Type: Spontaneous
  Country: US (occurrence: US)
  Receive Date: 20210108
  Receipt Date: 20210127
  Transmission Date: 20210419
  Serious: No
  Sender: FDA-Public Use
  Company Number: US-GLAXOSMITHKLINE-US2020AMR259280

PATIENT
  Sex: Female

DRUGS (2)
  1. ZEJULA [Suspect]
     Active Substance: NIRAPARIB
     Indication: OVARIAN CANCER
     Dosage: 200 MG, QD
     Route: 048
     Dates: start: 20201217
  2. ZEJULA [Suspect]
     Active Substance: NIRAPARIB
     Dosage: 100 MG, QD
     Route: 048

REACTIONS (13)
  - Palpitations [Unknown]
  - Constipation [Unknown]
  - Performance status decreased [Unknown]
  - Illness [Unknown]
  - Decreased appetite [Unknown]
  - Nausea [Unknown]
  - Dyspnoea [Unknown]
  - Asthenia [Unknown]
  - Weight decreased [Unknown]
  - Accidental underdose [Unknown]
  - Fatigue [Unknown]
  - Insomnia [Unknown]
  - Cough [Unknown]
